FAERS Safety Report 5243597-4 (Version None)
Quarter: 2007Q1

REPORT INFORMATION
  Report Type: 
  Country: None (occurrence: None)
  Receive Date: 20070220
  Receipt Date: 20070220
  Transmission Date: 20070707
  Serious: Yes (Hospitalization)
  Sender: FDA-Public Use
  Company Number: None

PATIENT
  Age: 60 Year
  Sex: Male
  Weight: 81.6475 kg

DRUGS (2)
  1. TAXOL [Suspect]
     Indication: CORONARY ARTERY DISEASE
     Dates: start: 20060911, end: 20070218
  2. TAXOL [Suspect]
     Indication: CORONARY ARTERY DISEASE
     Dates: start: 20061113, end: 20070218

REACTIONS (8)
  - APRAXIA [None]
  - CONFUSIONAL STATE [None]
  - CONVULSION [None]
  - ENCEPHALITIS [None]
  - GRAND MAL CONVULSION [None]
  - NUCLEAR MAGNETIC RESONANCE IMAGING ABNORMAL [None]
  - SPEECH DISORDER [None]
  - TREMOR [None]
